FAERS Safety Report 14989982 (Version 4)
Quarter: 2018Q3

REPORT INFORMATION
  Report Type: Report from Study
  Country: AU (occurrence: AU)
  Receive Date: 20180608
  Receipt Date: 20180926
  Transmission Date: 20181010
  Serious: Yes (Death, Life-Threatening, Hospitalization, Other)
  Sender: FDA-Public Use
  Company Number: AU-EISAI MEDICAL RESEARCH-EC-2018-036388

PATIENT
  Age: 70 Year
  Sex: Male
  Weight: 74.1 kg

DRUGS (12)
  1. EVEROLIMUS. [Suspect]
     Active Substance: EVEROLIMUS
     Route: 048
     Dates: start: 20180222, end: 20180329
  2. LENVATINIB [Suspect]
     Active Substance: LENVATINIB
     Indication: RENAL CELL CARCINOMA
     Route: 048
     Dates: start: 20171218, end: 20180127
  3. LENVATINIB [Suspect]
     Active Substance: LENVATINIB
     Route: 048
     Dates: start: 20180202, end: 20180219
  4. LENVATINIB [Suspect]
     Active Substance: LENVATINIB
     Route: 048
     Dates: start: 20180222, end: 20180313
  5. LOPERAMIDE [Concomitant]
     Active Substance: LOPERAMIDE
  6. LENVATINIB [Suspect]
     Active Substance: LENVATINIB
     Route: 048
     Dates: start: 20180314, end: 20180329
  7. ATENOLOL. [Concomitant]
     Active Substance: ATENOLOL
  8. PANADOL [Concomitant]
     Active Substance: ACETAMINOPHEN
  9. APIXABAN [Concomitant]
     Active Substance: APIXABAN
  10. LYSINE [Concomitant]
     Active Substance: LYSINE
  11. EVEROLIMUS. [Suspect]
     Active Substance: EVEROLIMUS
     Indication: RENAL CELL CARCINOMA
     Route: 048
     Dates: start: 20171218, end: 20180127
  12. EVEROLIMUS. [Suspect]
     Active Substance: EVEROLIMUS
     Route: 048
     Dates: start: 20180202, end: 20180219

REACTIONS (4)
  - Confusional state [Recovering/Resolving]
  - Gastrooesophageal reflux disease [Recovered/Resolved]
  - Partial seizures [Recovered/Resolved]
  - Drug titration error [Recovered/Resolved]

NARRATIVE: CASE EVENT DATE: 20180219
